FAERS Safety Report 5009734-1 (Version None)
Quarter: 2006Q2

REPORT INFORMATION
  Report Type: 
  Country: None (occurrence: None)
  Receive Date: 20060523
  Receipt Date: 20060523
  Transmission Date: 20061013
  Serious: Yes (Hospitalization)
  Sender: FDA-Public Use
  Company Number: None

PATIENT
  Age: 82 Year
  Sex: Male

DRUGS (2)
  1. GLYBURIDE [Suspect]
     Indication: DIABETES MELLITUS
     Dosage: 2.5MG DAILY
  2. LANTUS [Suspect]
     Indication: DIABETES MELLITUS
     Dosage: 23 UNITS SC QHS
     Route: 058

REACTIONS (6)
  - ALPHA HAEMOLYTIC STREPTOCOCCAL INFECTION [None]
  - CONVULSION [None]
  - DIALYSIS [None]
  - HAEMATOCRIT DECREASED [None]
  - HYPOGLYCAEMIA [None]
  - PYREXIA [None]
